FAERS Safety Report 6589830-8 (Version None)
Quarter: 2010Q1

REPORT INFORMATION
  Report Type: 
  Country: None (occurrence: None)
  Receive Date: 20100219
  Receipt Date: 20100209
  Transmission Date: 20100710
  Serious: Yes (Other)
  Sender: FDA-Public Use
  Company Number: US-JNJFOC-20100106870

PATIENT
  Age: 86 Year
  Sex: Male

DRUGS (3)
  1. EXTRA STRENGTH TYLENOL PM [Suspect]
     Indication: ARTHRALGIA
     Dosage: 2 CAPLETS
     Route: 048
  2. EXTRA STRENGTH TYLENOL PM [Suspect]
     Indication: INSOMNIA
     Dosage: 2 CAPLETS
     Route: 048
  3. CELEBREX [Concomitant]
     Indication: PAIN

REACTIONS (5)
  - ABDOMINAL DISCOMFORT [None]
  - DIARRHOEA [None]
  - PRODUCT QUALITY ISSUE [None]
  - VOMITING [None]
  - WEIGHT DECREASED [None]
